FAERS Safety Report 24214237 (Version 1)
Quarter: 2024Q3

REPORT INFORMATION
  Report Type: Spontaneous
  Country: US (occurrence: None)
  Receive Date: 20240815
  Receipt Date: 20240815
  Transmission Date: 20241016
  Serious: Yes (Hospitalization)
  Sender: Public
  Company Number: None

PATIENT
  Sex: Female

DRUGS (8)
  1. TADLIQ [Suspect]
     Active Substance: TADALAFIL
     Indication: Cerebral palsy
     Dosage: 3.4ML DAILY J-TUBE?
     Route: 050
     Dates: start: 202405
  2. TADLIQ [Suspect]
     Active Substance: TADALAFIL
     Indication: Pulmonary arterial hypertension
  3. REMODULIN [Concomitant]
  4. LIDOCAINE/PRILOCAINE [Concomitant]
  5. HIZENTRA [Concomitant]
  6. C-FORMULATION [Concomitant]
  7. PUMP CADD [Concomitant]
  8. STERILE DILUENT [Concomitant]

REACTIONS (1)
  - Haematological infection [None]
